FAERS Safety Report 11165600 (Version 2)
Quarter: 2015Q3

REPORT INFORMATION
  Report Type: Spontaneous
  Country: US (occurrence: US)
  Receive Date: 20150604
  Receipt Date: 20150814
  Transmission Date: 20151125
  Serious: Yes (Other)
  Sender: FDA-Public Use
  Company Number: US-ABBVIE-15P-163-1401341-00

PATIENT
  Age: 15 Year
  Sex: Female

DRUGS (11)
  1. LUPRON DEPOT [Suspect]
     Active Substance: LEUPROLIDE ACETATE
     Indication: UTERINE LEIOMYOMA
     Route: 065
     Dates: start: 19950508, end: 19950508
  2. LUPRON DEPOT [Suspect]
     Active Substance: LEUPROLIDE ACETATE
     Route: 065
     Dates: start: 19950630, end: 19950630
  3. DIETHYLSTILBESTROL [Concomitant]
     Active Substance: DIETHYLSTILBESTROL
     Indication: PRODUCT USED FOR UNKNOWN INDICATION
  4. LO-OVRAL [Concomitant]
     Indication: PRODUCT USED FOR UNKNOWN INDICATION
     Dates: start: 198910
  5. LUPRON DEPOT [Suspect]
     Active Substance: LEUPROLIDE ACETATE
     Route: 065
     Dates: start: 19950603, end: 19950603
  6. VENTOLIN [Concomitant]
     Active Substance: ALBUTEROL SULFATE
     Indication: ASTHMA
  7. LUPRON DEPOT [Suspect]
     Active Substance: LEUPROLIDE ACETATE
     Indication: ENDOMETRIOSIS
     Route: 065
     Dates: start: 19950408, end: 19950408
  8. LUPRON DEPOT [Suspect]
     Active Substance: LEUPROLIDE ACETATE
     Route: 065
     Dates: start: 19950909, end: 19950909
  9. LUPRON DEPOT [Suspect]
     Active Substance: LEUPROLIDE ACETATE
     Route: 065
     Dates: start: 19950805, end: 19950805
  10. ASTHMACORT [Concomitant]
     Active Substance: TRIAMCINOLONE ACETONIDE
     Indication: ASTHMA
  11. ANAPROX [Concomitant]
     Active Substance: NAPROXEN SODIUM
     Indication: PELVIC PAIN
     Dates: start: 1991

REACTIONS (27)
  - Vomiting [Unknown]
  - Post-traumatic stress disorder [Not Recovered/Not Resolved]
  - Uterine pain [Recovered/Resolved]
  - Red blood cell sedimentation rate increased [Unknown]
  - Toxicity to various agents [Unknown]
  - Hysterectomy [Not Recovered/Not Resolved]
  - Cervix disorder [Unknown]
  - Depression [Not Recovered/Not Resolved]
  - Headache [Unknown]
  - Vaginal haemorrhage [Unknown]
  - Uterine disorder [Unknown]
  - Nausea [Unknown]
  - Pelvic pain [Unknown]
  - Vaginal haemorrhage [Unknown]
  - Fallopian tube disorder [Unknown]
  - Dizziness [Unknown]
  - Physical disability [Unknown]
  - Migraine [Unknown]
  - Abortion spontaneous [Unknown]
  - Drug ineffective [Unknown]
  - Uterine leiomyoma [Recovered/Resolved]
  - Economic problem [Unknown]
  - Blood prolactin increased [Unknown]
  - Exposure during pregnancy [Unknown]
  - Anaemia [Unknown]
  - Emotional distress [Unknown]
  - Acne [Unknown]

NARRATIVE: CASE EVENT DATE: 19950920
